FAERS Safety Report 7510281-3 (Version None)
Quarter: 2011Q2

REPORT INFORMATION
  Report Type: 
  Country: None (occurrence: None)
  Receive Date: 20110527
  Receipt Date: 20110518
  Transmission Date: 20111010
  Serious: Yes (Other)
  Sender: FDA-Public Use
  Company Number: US-ASTRAZENECA-2011SE28607

PATIENT
  Age: 53 Year
  Sex: Female

DRUGS (5)
  1. PREVACID [Concomitant]
  2. ZANTAC [Concomitant]
  3. PRILOSEC [Suspect]
     Route: 048
  4. NEXIUM [Suspect]
     Route: 048
  5. ACIFEX [Concomitant]

REACTIONS (9)
  - BREAST CANCER [None]
  - DRUG DOSE OMISSION [None]
  - DRUG INEFFECTIVE [None]
  - ESCHERICHIA INFECTION [None]
  - THROAT IRRITATION [None]
  - OESOPHAGOGASTRODUODENOSCOPY [None]
  - GASTROOESOPHAGEAL REFLUX DISEASE [None]
  - STAPHYLOCOCCAL INFECTION [None]
  - BREAST RECONSTRUCTION [None]
